FAERS Safety Report 19977335 (Version 1)
Quarter: 2021Q4

REPORT INFORMATION
  Report Type: Spontaneous
  Country: US (occurrence: US)
  Receive Date: 20211020
  Receipt Date: 20211020
  Transmission Date: 20220303
  Serious: No
  Sender: FDA-Public Use
  Company Number: US-ALLERGAN-2113015US

PATIENT
  Age: 82 Year
  Sex: Female

DRUGS (23)
  1. LINZESS [Suspect]
     Active Substance: LINACLOTIDE
     Indication: Constipation
     Dosage: 145 ?G, QAM
     Route: 048
     Dates: start: 20210324, end: 20210324
  2. DOXAZOSIN [Concomitant]
     Active Substance: DOXAZOSIN MESYLATE
     Dosage: 4 MG, QD
     Route: 048
  3. RETINOL [Concomitant]
     Active Substance: RETINOL
     Indication: Nutritional supplementation
     Dosage: UNK
     Route: 048
  4. DIAZEPAM [Concomitant]
     Active Substance: DIAZEPAM
     Dosage: UNK
     Route: 048
  5. ATORVASTATIN [Concomitant]
     Active Substance: ATORVASTATIN
     Indication: Blood cholesterol increased
     Dosage: 40 MG, QD
     Route: 048
  6. GLIMEPIRIDE [Concomitant]
     Active Substance: GLIMEPIRIDE
     Indication: Diabetes mellitus
     Dosage: 2 DF, QD
     Route: 048
  7. AMLODIPINE [Concomitant]
     Active Substance: AMLODIPINE BESYLATE
     Indication: Hypertension
     Dosage: 5 MG, QD
     Route: 048
  8. METOPROLOL [Concomitant]
     Active Substance: METOPROLOL
     Indication: Hypertension
     Dosage: 25 MG, QD
     Route: 048
  9. OSCAL                              /00514701/ [Concomitant]
     Indication: Nutritional supplementation
     Dosage: UNK
     Route: 048
  10. CALCIUM D GLUCARATE [Concomitant]
     Indication: Nutritional supplementation
     Dosage: UNK
     Route: 048
  11. VITAMIN C [Concomitant]
     Active Substance: ASCORBIC ACID
     Indication: Nutritional supplementation
     Dosage: 1000 MG, QD
     Route: 048
  12. VITAMIN D NOS [Concomitant]
     Active Substance: VITAMIN D NOS
     Indication: Nutritional supplementation
     Dosage: 10 MG, QD
     Route: 048
  13. ASPIRIN [Concomitant]
     Active Substance: ASPIRIN
     Dosage: 81 MG, QD
     Route: 048
  14. TOCOPHEROL [Concomitant]
     Active Substance: TOCOPHEROL
     Indication: Nutritional supplementation
     Dosage: 184 MG, QD
     Route: 048
  15. ZINC [Concomitant]
     Active Substance: ZINC
     Indication: COVID-19 prophylaxis
     Dosage: UNK, PRN
  16. VITAMIN D3 [Concomitant]
     Active Substance: CHOLECALCIFEROL
     Indication: Nutritional supplementation
     Dosage: 100 MG, QD
     Route: 048
  17. CALCIUM MAGNESIUM                  /00591201/ [Concomitant]
     Indication: Nutritional supplementation
     Dosage: 50 MG, QD
     Route: 048
  18. VITAMINS WITH MINERALS [Concomitant]
     Active Substance: MINERALS\VITAMINS
     Indication: Nutritional supplementation
     Dosage: 1 DF, QD
     Route: 048
  19. STOOL SOFTENER (Walgreens) [Concomitant]
     Indication: Constipation
     Dosage: 2 DF, QD
  20. VITAMIN B12 [Concomitant]
     Active Substance: CYANOCOBALAMIN
     Indication: Asthenia
     Dosage: UNK, PRN
     Route: 048
  21. GAS-X [Concomitant]
     Active Substance: DIMETHICONE
     Indication: Flatulence
     Dosage: UNK
     Route: 048
  22. Culturelle Probiotic Gummies [Concomitant]
     Indication: Nutritional supplementation
     Dosage: UNK
     Route: 048
  23. MODERNA COVID-19 VACCINE [Concomitant]
     Active Substance: CX-024414
     Indication: COVID-19 prophylaxis
     Dosage: BOTH DOSES ADMINISTERED

REACTIONS (2)
  - Expired product administered [Unknown]
  - Drug ineffective [Unknown]

NARRATIVE: CASE EVENT DATE: 20210324
